FAERS Safety Report 19656337 (Version 2)
Quarter: 2022Q1

REPORT INFORMATION
  Report Type: Spontaneous
  Country: US (occurrence: US)
  Receive Date: 20210804
  Receipt Date: 20220114
  Transmission Date: 20220424
  Serious: Yes (Death, Other)
  Sender: FDA-Public Use
  Company Number: US-GLAXOSMITHKLINE-US2021GSK166166

PATIENT
  Sex: Female

DRUGS (6)
  1. ZANTAC [Suspect]
     Active Substance: RANITIDINE HYDROCHLORIDE
     Indication: Hiatus hernia
     Dosage: UNK, QD
     Route: 065
     Dates: start: 1985, end: 201910
  2. ZANTAC [Suspect]
     Active Substance: RANITIDINE HYDROCHLORIDE
     Indication: Hiatus hernia
     Dosage: UNK, QD
     Route: 065
     Dates: start: 1985, end: 201910
  3. RANITIDINE HYDROCHLORIDE [Suspect]
     Active Substance: RANITIDINE HYDROCHLORIDE
     Indication: Hiatus hernia
     Dosage: UNK, QD
     Route: 065
     Dates: start: 1985, end: 201910
  4. RANITIDINE HYDROCHLORIDE [Suspect]
     Active Substance: RANITIDINE HYDROCHLORIDE
     Dosage: 150 MG
     Route: 065
     Dates: start: 20171219
  5. RANITIDINE HYDROCHLORIDE [Suspect]
     Active Substance: RANITIDINE HYDROCHLORIDE
     Indication: Hiatus hernia
     Dosage: UNK, QD
     Route: 065
     Dates: start: 1985, end: 201910
  6. RANITIDINE HYDROCHLORIDE [Suspect]
     Active Substance: RANITIDINE HYDROCHLORIDE
     Indication: Hiatus hernia
     Dosage: 25 MG
     Route: 065
     Dates: start: 20141010

REACTIONS (14)
  - Septic shock [Fatal]
  - Pneumonia [Fatal]
  - COVID-19 [Fatal]
  - Renal cancer [Unknown]
  - Chronic kidney disease [Unknown]
  - Acute kidney injury [Unknown]
  - Hypertensive nephropathy [Unknown]
  - Single functional kidney [Unknown]
  - Renal disorder [Unknown]
  - Pollakiuria [Unknown]
  - Urinary tract infection [Unknown]
  - Diabetic nephropathy [Unknown]
  - Hyperparathyroidism secondary [Unknown]
  - Ureteral disorder [Unknown]
